FAERS Safety Report 8412513-6 (Version None)
Quarter: 2012Q2

REPORT INFORMATION
  Report Type: 
  Country: None (occurrence: None)
  Receive Date: 20120605
  Receipt Date: 20120521
  Transmission Date: 20120825
  Serious: No
  Sender: FDA-Public Use
  Company Number: US-AMGEN-USASP2012032068

PATIENT
  Age: 45 Year
  Sex: Female

DRUGS (1)
  1. ENBREL [Suspect]
     Indication: ANKYLOSING SPONDYLITIS
     Dosage: 50 MG, QWK
     Dates: start: 20120406

REACTIONS (9)
  - INJECTION SITE SWELLING [None]
  - HYPERSOMNIA [None]
  - INJECTION SITE URTICARIA [None]
  - INJECTION SITE REACTION [None]
  - VERTIGO [None]
  - FATIGUE [None]
  - MALAISE [None]
  - INJECTION SITE ERYTHEMA [None]
  - MIGRAINE [None]
